FAERS Safety Report 24567869 (Version 3)
Quarter: 2024Q4

REPORT INFORMATION
  Report Type: Spontaneous
  Country: US (occurrence: US)
  Receive Date: 20241031
  Receipt Date: 20241208
  Transmission Date: 20250115
  Serious: No
  Sender: GLAXOSMITHKLINE
  Company Number: US-GSK-US2024AMR130574

PATIENT
  Sex: Female

DRUGS (1)
  1. ALBUTEROL SULFATE [Suspect]
     Active Substance: ALBUTEROL SULFATE
     Indication: Product used for unknown indication
     Dosage: UNK, 90MCG 1X200D

REACTIONS (4)
  - Wrong technique in device usage process [Unknown]
  - Product storage error [Unknown]
  - Incorrect dose administered [Unknown]
  - Product complaint [Unknown]
